FAERS Safety Report 18477262 (Version 1)
Quarter: 2020Q4

REPORT INFORMATION
  Report Type: Report from Study
  Country: IT (occurrence: IT)
  Receive Date: 20201107
  Receipt Date: 20201107
  Transmission Date: 20210114
  Serious: Yes (Hospitalization)
  Sender: FDA-Public Use
  Company Number: IT-TEVA-2020-IT-1845139

PATIENT
  Age: 89 Year
  Sex: Female

DRUGS (6)
  1. RAMIPRIL. [Suspect]
     Active Substance: RAMIPRIL
     Dosage: 10 MG
     Route: 048
     Dates: start: 20200101, end: 20200930
  2. COLCHICINE. [Concomitant]
     Active Substance: COLCHICINE
  3. NITRODERM [Concomitant]
     Active Substance: NITROGLYCERIN
  4. CAPOTEN [Suspect]
     Active Substance: CAPTOPRIL
     Dates: start: 20200101, end: 20200929
  5. BRUFEN [Concomitant]
     Active Substance: IBUPROFEN
     Dosage: 2 DOSAGE FORMS
  6. OMEPRAZOLE. [Concomitant]
     Active Substance: OMEPRAZOLE
     Dosage: 20 MG

REACTIONS (4)
  - Hypotension [Unknown]
  - Hyponatraemia [Unknown]
  - Presyncope [Unknown]
  - Sinus tachycardia [Unknown]

NARRATIVE: CASE EVENT DATE: 20200930
